FAERS Safety Report 20393778 (Version 3)
Quarter: 2022Q2

REPORT INFORMATION
  Report Type: Report from Study
  Country: US (occurrence: US)
  Receive Date: 20220128
  Receipt Date: 20220614
  Transmission Date: 20220721
  Serious: Yes (Other)
  Sender: FDA-Public Use
  Company Number: US-ABBVIE-22K-163-4252832-00

PATIENT
  Sex: Female

DRUGS (2)
  1. IMBRUVICA [Suspect]
     Active Substance: IBRUTINIB
     Indication: Chronic lymphocytic leukaemia
     Dosage: ONCE DAILY ON MONDAYS AND THURSDAYS FOR 28 DAYS
     Route: 048
     Dates: start: 20181218
  2. IMBRUVICA [Suspect]
     Active Substance: IBRUTINIB
     Indication: Chronic lymphocytic leukaemia
     Dosage: ONCE DAILY ON MONDAYS AND THURSDAYS FOR 28 DAYS
     Route: 048

REACTIONS (19)
  - Cataract [Unknown]
  - Ulcer haemorrhage [Unknown]
  - Nausea [Unknown]
  - Abdominal pain upper [Unknown]
  - Disease susceptibility [Unknown]
  - Arthralgia [Not Recovered/Not Resolved]
  - Muscle spasms [Unknown]
  - Asthenia [Unknown]
  - Unevaluable event [Unknown]
  - Feeling abnormal [Unknown]
  - Lymphadenopathy [Unknown]
  - Abdominal distension [Unknown]
  - Urinary incontinence [Unknown]
  - Urinary tract infection [Unknown]
  - Malaise [Unknown]
  - Back disorder [Unknown]
  - Spondylitis [Unknown]
  - Bursitis [Unknown]
  - Diarrhoea [Unknown]

NARRATIVE: CASE EVENT DATE: 20220101
